FAERS Safety Report 8245317-8 (Version None)
Quarter: 2012Q1

REPORT INFORMATION
  Report Type: 
  Country: None (occurrence: None)
  Receive Date: 20120329
  Receipt Date: 20120321
  Transmission Date: 20120608
  Serious: Yes (Hospitalization)
  Sender: FDA-Public Use
  Company Number: US-ELI_LILLY_AND_COMPANY-US201201004871

PATIENT
  Age: 39 Year
  Sex: Male

DRUGS (2)
  1. FORTEO [Suspect]
     Indication: OSTEOPOROSIS
     Dosage: UNK UNK, QD
     Dates: start: 20120101
  2. FORTEO [Suspect]
     Dosage: UNK, QD

REACTIONS (3)
  - SLEEP DISORDER [None]
  - CARDIAC PACEMAKER INSERTION [None]
  - VISION BLURRED [None]
